FAERS Safety Report 7548029-9 (Version None)
Quarter: 2011Q2

REPORT INFORMATION
  Report Type: 
  Country: None (occurrence: None)
  Receive Date: 20110608
  Receipt Date: 20110523
  Transmission Date: 20111010
  Serious: Yes (Other)
  Sender: FDA-Public Use
  Company Number: THQ2005A00345

PATIENT
  Age: 77 Year
  Sex: Male

DRUGS (17)
  1. PANTOPRAZOLE SODIUM [Suspect]
     Indication: STRESS ULCER
     Dosage: 40 MG (40 MG, 1 IN 1 D), INTRAVENOUS
     Route: 042
     Dates: start: 20050102, end: 20050127
  2. PANTOPRAZOLE SODIUM [Suspect]
     Indication: PEPTIC ULCER
     Dosage: 40 MG (40 MG, 1 IN 1 D), INTRAVENOUS
     Route: 042
     Dates: start: 20050102, end: 20050127
  3. PANTOPRAZOLE SODIUM [Suspect]
     Indication: PROPHYLAXIS
     Dosage: 40 MG (40 MG, 1 IN 1 D), INTRAVENOUS
     Route: 042
     Dates: start: 20050102, end: 20050127
  4. LINEZOLID [Concomitant]
  5. HEPARIN [Concomitant]
  6. METOCLOPRAMIDE [Concomitant]
  7. PROPOFOL [Concomitant]
  8. FUROSEMIDE [Concomitant]
  9. LINEZOLID [Suspect]
     Indication: STAPHYLOCOCCAL INFECTION
     Dosage: 1200 MG (600 MG, 2 IN 1 D), INTRAVENOUS
     Route: 042
     Dates: start: 20050104, end: 20050120
  10. NOREPINEPHRINE BITARTRATE [Concomitant]
  11. TAZOCIN (PIPERACILLIN SODIUM TAZOBACTAM SODIUM) [Concomitant]
  12. INSULIN [Concomitant]
  13. ALFENTANIL [Concomitant]
  14. LANSOPRAZOLE [Suspect]
     Indication: PEPTIC ULCER
     Dosage: 30 MG (1 IN 1 D), PER ORAL
     Route: 048
     Dates: start: 20050127, end: 20050201
  15. AMIODARONE HYDROCHLORIDE [Concomitant]
  16. FLOXACILLIN SODIUM [Concomitant]
  17. TEICOPLANIN [Concomitant]

REACTIONS (5)
  - RENAL FAILURE ACUTE [None]
  - LIVER FUNCTION TEST ABNORMAL [None]
  - BLOOD BILIRUBIN INCREASED [None]
  - ALANINE AMINOTRANSFERASE INCREASED [None]
  - BLOOD ALKALINE PHOSPHATASE INCREASED [None]
